FAERS Safety Report 6093447-1 (Version None)
Quarter: 2009Q1

REPORT INFORMATION
  Report Type: 
  Country: None (occurrence: None)
  Receive Date: 20090223
  Receipt Date: 20090223
  Transmission Date: 20090719
  Serious: Yes (Hospitalization)
  Sender: FDA-Public Use
  Company Number: None

PATIENT
  Age: 35 Year
  Sex: Male
  Weight: 106.5953 kg

DRUGS (1)
  1. RAPTIVA [Suspect]
     Indication: PSORIASIS
     Dosage: ONCE WEEK SQ APPROX 6 WEEKS
     Route: 058
     Dates: start: 20050220, end: 20050401

REACTIONS (2)
  - PNEUMONIA [None]
  - THROMBOSIS [None]
